FAERS Safety Report 4758456-0 (Version None)
Quarter: 2005Q3

REPORT INFORMATION
  Report Type: 
  Country: None (occurrence: None)
  Receive Date: 20050901
  Receipt Date: 20050824
  Transmission Date: 20060218
  Serious: Yes (Hospitalization)
  Sender: FDA-Public Use
  Company Number: US-BOEHRINGER INGELHEIM PHARMACEUTICALS, INC.-2005-BP-14872BP

PATIENT
  Age: 55 Year
  Sex: Female

DRUGS (7)
  1. MIRAPEX [Suspect]
     Indication: PARKINSON'S DISEASE
     Route: 048
     Dates: start: 20021211, end: 20030124
  2. MIRAPEX [Suspect]
     Route: 048
     Dates: start: 20030124, end: 20030310
  3. MIRAPEX [Suspect]
     Route: 048
     Dates: start: 20030310
  4. REQUIP [Suspect]
     Route: 048
     Dates: start: 20040512, end: 20041012
  5. REQUIP [Suspect]
     Route: 048
     Dates: start: 20041013, end: 20050111
  6. REQUIP [Suspect]
     Route: 048
     Dates: start: 20050111, end: 20050124
  7. REQUIP [Suspect]
     Route: 048
     Dates: start: 20050125

REACTIONS (1)
  - WEIGHT INCREASED [None]
